FAERS Safety Report 9907316 (Version 1)
Quarter: 2014Q1

REPORT INFORMATION
  Report Type: Spontaneous
  Country: US (occurrence: US)
  Receive Date: 20140218
  Receipt Date: 20140218
  Transmission Date: 20141002
  Serious: No
  Sender: FDA-Public Use
  Company Number: US-ASTRAZENECA-2014SE05855

PATIENT
  Age: 85 Year
  Sex: Female

DRUGS (2)
  1. TENORMIN [Suspect]
     Route: 048
  2. UNSPECIFIED GENERIC [Suspect]
     Route: 065

REACTIONS (1)
  - Gastric disorder [Unknown]
